FAERS Safety Report 5932699-2 (Version None)
Quarter: 2008Q4

REPORT INFORMATION
  Report Type: 
  Country: None (occurrence: None)
  Receive Date: 20081027
  Receipt Date: 20081027
  Transmission Date: 20090506
  Serious: Yes (Disabling, Other)
  Sender: FDA-Public Use
  Company Number: None

PATIENT
  Age: 51 Year
  Sex: Male
  Weight: 72 kg

DRUGS (1)
  1. MIFLONIDE 400 [Suspect]
     Indication: ASTHMA PROPHYLAXIS
     Dosage: 400 MCG ONCE DAILY INHAL
     Route: 055
     Dates: start: 20040501, end: 20081025

REACTIONS (5)
  - FATIGUE [None]
  - FEELING ABNORMAL [None]
  - IRRITABILITY [None]
  - MUSCLE DISORDER [None]
  - RASH [None]
